FAERS Safety Report 4341585-3 (Version None)
Quarter: 2004Q2

REPORT INFORMATION
  Report Type: 
  Country: None (occurrence: None)
  Receive Date: 20040415
  Receipt Date: 20040330
  Transmission Date: 20050107
  Serious: Yes (Other)
  Sender: FDA-Public Use
  Company Number: USA040363669

PATIENT
  Age: 86 Year
  Sex: Female

DRUGS (1)
  1. FORTEO [Suspect]
     Indication: OSTEOPOROSIS
     Dosage: 20 UG/1 DAY
     Dates: start: 20031101

REACTIONS (6)
  - BLADDER CANCER [None]
  - CERVIX CARCINOMA [None]
  - CYSTITIS [None]
  - FEELING ABNORMAL [None]
  - METASTASES TO BONE [None]
  - PHARMACEUTICAL PRODUCT COMPLAINT [None]
